FAERS Safety Report 14168036 (Version 2)
Quarter: 2018Q2

REPORT INFORMATION
  Report Type: Spontaneous
  Country: US (occurrence: US)
  Receive Date: 20171107
  Receipt Date: 20180515
  Transmission Date: 20180711
  Serious: No
  Sender: FDA-Public Use
  Company Number: US-SA-2017SA162907

PATIENT
  Sex: Male

DRUGS (2)
  1. TOUJEO [Suspect]
     Active Substance: INSULIN GLARGINE
     Dosage: SLOWLY INCREASING I DOSE, IS UPTO 35 UNITS TODAY
     Route: 051
     Dates: start: 201708
  2. SOLOSTAR [Suspect]
     Active Substance: DEVICE
     Dates: start: 201708

REACTIONS (1)
  - Blood glucose increased [Recovering/Resolving]
